FAERS Safety Report 22278417 (Version 1)
Quarter: 2023Q2

REPORT INFORMATION
  Report Type: Spontaneous
  Country: GB (occurrence: GB)
  Receive Date: 20230503
  Receipt Date: 20230503
  Transmission Date: 20230722
  Serious: Yes (Hospitalization, Other)
  Sender: FDA-Public Use
  Company Number: GB-MYLANLABS-2023M1045848

PATIENT
  Sex: Female

DRUGS (2)
  1. CLOZARIL [Suspect]
     Active Substance: CLOZAPINE
     Indication: Schizophrenia
     Dosage: UNK
     Route: 048
     Dates: start: 20171004
  2. CLOZARIL [Suspect]
     Active Substance: CLOZAPINE
     Dosage: 150 MILLIGRAM, QD (FEBRUARY (150 MG OM))
     Route: 048

REACTIONS (5)
  - Schizophrenia [Unknown]
  - Mental impairment [Unknown]
  - Antipsychotic drug level increased [Unknown]
  - Abnormal behaviour [Unknown]
  - Fatigue [Unknown]
